FAERS Safety Report 5282870-0 (Version None)
Quarter: 2007Q1

REPORT INFORMATION
  Report Type: 
  Country: None (occurrence: None)
  Receive Date: 20070329
  Receipt Date: 20070329
  Transmission Date: 20070707
  Serious: Yes (Life-Threatening)
  Sender: FDA-Public Use
  Company Number: None

PATIENT
  Age: 19 Year
  Sex: Male
  Weight: 81.6475 kg

DRUGS (1)
  1. ISOTRETINOIN 40 MG/ BARR LABS [Suspect]
     Indication: ACNE
     Dosage: 1 TABLET BID PO
     Route: 048
     Dates: start: 20061226, end: 20070312

REACTIONS (3)
  - ALCOHOL POISONING [None]
  - MEMORY IMPAIRMENT [None]
  - SUICIDE ATTEMPT [None]
